FAERS Safety Report 24592656 (Version 3)
Quarter: 2025Q1

REPORT INFORMATION
  Report Type: Report from Study
  Country: US (occurrence: US)
  Receive Date: 20241108
  Receipt Date: 20250130
  Transmission Date: 20250408
  Serious: Yes (Hospitalization, Other)
  Sender: CSL BEHRING
  Company Number: US-BEH-2024182380

PATIENT
  Age: 13 Year
  Sex: Female
  Weight: 53.3 kg

DRUGS (3)
  1. BERINERT [Suspect]
     Active Substance: HUMAN C1-ESTERASE INHIBITOR
     Indication: Hereditary angioedema
     Dosage: 3000 IU/KG, BIW
     Route: 058
  2. BERINERT [Suspect]
     Active Substance: HUMAN C1-ESTERASE INHIBITOR
     Indication: Prophylaxis
     Route: 065
  3. BERINERT [Suspect]
     Active Substance: HUMAN C1-ESTERASE INHIBITOR
     Dosage: 3300 IU, BIW
     Route: 058
     Dates: start: 201811

REACTIONS (7)
  - Hereditary angioedema [Recovered/Resolved]
  - Fall [Unknown]
  - Swelling [Recovered/Resolved]
  - Injection site pain [Not Recovered/Not Resolved]
  - Product use issue [Unknown]
  - Hereditary angioedema [Recovered/Resolved]
  - COVID-19 [Unknown]

NARRATIVE: CASE EVENT DATE: 20240101
